FAERS Safety Report 5010576-1 (Version None)
Quarter: 2006Q2

REPORT INFORMATION
  Report Type: 
  Country: None (occurrence: None)
  Receive Date: 20060524
  Receipt Date: 20060524
  Transmission Date: 20061013
  Serious: Yes (Life-Threatening, Hospitalization)
  Sender: FDA-Public Use
  Company Number: None

PATIENT
  Age: 44 Year
  Sex: Female
  Weight: 79.3795 kg

DRUGS (1)
  1. NUVARING [Suspect]
     Indication: CONTRACEPTION
     Dosage: MONTHLY VAG
     Route: 067
     Dates: start: 20040301, end: 20051114

REACTIONS (3)
  - PHARMACEUTICAL PRODUCT COMPLAINT [None]
  - PULMONARY THROMBOSIS [None]
  - THROMBOSIS [None]
